FAERS Safety Report 25273276 (Version 1)
Quarter: 2025Q2

REPORT INFORMATION
  Report Type: Spontaneous
  Country: US (occurrence: US)
  Receive Date: 20250506
  Receipt Date: 20250506
  Transmission Date: 20250717
  Serious: Yes (Other)
  Sender: AMNEAL
  Company Number: US-AMNEAL PHARMACEUTICALS-2024-AMRX-02297

PATIENT
  Sex: Female
  Weight: 16.508 kg

DRUGS (4)
  1. VIGABATRIN [Suspect]
     Active Substance: VIGABATRIN
     Indication: Product used for unknown indication
     Dosage: 15 MILLIMETRE, 2X/DAY
     Route: 048
  2. DESMOPRESSIN ACETATE [Concomitant]
     Active Substance: DESMOPRESSIN ACETATE
     Indication: Product used for unknown indication
     Route: 048
  3. TOPIRAMATE [Concomitant]
     Active Substance: TOPIRAMATE
     Indication: Product used for unknown indication
     Route: 048
  4. PHENOBARBITAL AND BELLADONNA [ATROPINE SULFATE;PHENOBARBITAL] [Concomitant]
     Indication: Product used for unknown indication
     Route: 065

REACTIONS (4)
  - Seizure [Not Recovered/Not Resolved]
  - Breath holding [Not Recovered/Not Resolved]
  - Cyanosis [Not Recovered/Not Resolved]
  - Product use issue [Unknown]
